FAERS Safety Report 5109928-0 (Version None)
Quarter: 2006Q3

REPORT INFORMATION
  Report Type: 
  Country: None (occurrence: None)
  Receive Date: 20060921
  Receipt Date: 20000717
  Transmission Date: 20061208
  Serious: Yes (Life-Threatening, Hospitalization)
  Sender: FDA-Public Use
  Company Number: DE-BAYER-200051448BVD

PATIENT
  Age: 47 Year
  Sex: Male

DRUGS (2)
  1. AVELOX [Suspect]
     Indication: PNEUMONIA
     Route: 048
     Dates: start: 20000328, end: 20000328
  2. MARCUMAR [Concomitant]
     Indication: ATRIAL FIBRILLATION

REACTIONS (3)
  - ASTHMA [None]
  - PALATAL OEDEMA [None]
  - SHOCK [None]
